FAERS Safety Report 7817138-9 (Version None)
Quarter: 2011Q4

REPORT INFORMATION
  Report Type: 
  Country: None (occurrence: None)
  Receive Date: 20111017
  Receipt Date: 20111017
  Transmission Date: 20120403
  Serious: Yes (Death, Life-Threatening, Hospitalization, Disabling, Congenital Anomaly, Other)
  Sender: FDA-Public Use
  Company Number: None

PATIENT
  Age: 31 Year
  Sex: Female
  Weight: 58.967 kg

DRUGS (1)
  1. ORAJEL [Suspect]
     Indication: TOOTHACHE
     Dosage: ONE
     Route: 048
     Dates: start: 20111006, end: 20111013

REACTIONS (7)
  - DISORIENTATION [None]
  - DEAFNESS TRANSITORY [None]
  - FEELING COLD [None]
  - CONVULSION [None]
  - FEELING HOT [None]
  - VERTIGO [None]
  - LOSS OF CONSCIOUSNESS [None]
